FAERS Safety Report 9219251 (Version 1)
Quarter: 2013Q1

REPORT INFORMATION
  Report Type: Spontaneous
  Country: US (occurrence: US)
  Receive Date: 20120830
  Receipt Date: 20120830
  Transmission Date: 20140127
  Serious: Yes (Other)
  Sender: FDA-Public Use
  Company Number: PHEH2011US07591

PATIENT
  Age: 84 Year
  Sex: Female

DRUGS (4)
  1. SANDOSTATIN LAR DEPOT [Suspect]
     Indication: ACROMEGALY
  2. TABERALIN [Suspect]
  3. LOTREL (AMLODIPINE, BENAZEPRIL HYDROCHLORIDE) [Concomitant]
  4. SYNTHROID (LEVOTHYROXINE SODIUM) [Concomitant]

REACTIONS (3)
  - Insulin-like growth factor increased [None]
  - Headache [None]
  - Drug ineffective [None]
